FAERS Safety Report 19357504 (Version 2)
Quarter: 2021Q3

REPORT INFORMATION
  Report Type: Spontaneous
  Country: US (occurrence: US)
  Receive Date: 20210601
  Receipt Date: 20210714
  Transmission Date: 20211014
  Serious: No
  Sender: FDA-Public Use
  Company Number: US-TEVA-2021-US-1910343

PATIENT
  Age: 50 Year
  Sex: Male

DRUGS (3)
  1. LORATADINE. [Concomitant]
     Active Substance: LORATADINE
  2. TYLENOL [Concomitant]
     Active Substance: ACETAMINOPHEN
  3. AUSTEDO [Suspect]
     Active Substance: DEUTETRABENAZINE
     Indication: HUNTINGTON^S DISEASE
     Dosage: 24 MILLIGRAM DAILY; 12 MG PO
     Route: 048
     Dates: start: 20210330

REACTIONS (1)
  - Apraxia [Unknown]

NARRATIVE: CASE EVENT DATE: 2021
